FAERS Safety Report 19810599 (Version 4)
Quarter: 2022Q1

REPORT INFORMATION
  Report Type: Other
  Country: US (occurrence: None)
  Receive Date: 20210909
  Receipt Date: 20220211
  Transmission Date: 20220423
  Serious: Yes (Other)
  Sender: FDA-Public Use
  Company Number: US-ROCHE-2903671

PATIENT
  Sex: Female

DRUGS (30)
  1. ACTEMRA [Suspect]
     Active Substance: TOCILIZUMAB
     Indication: Iridocyclitis
     Dosage: INJECT 162MG SUBCUTANEOUSLY EVERY WEEK
     Route: 058
  2. ACTEMRA [Suspect]
     Active Substance: TOCILIZUMAB
  3. ACTEMRA [Suspect]
     Active Substance: TOCILIZUMAB
     Indication: Cyclitis
     Dosage: INJECT 162MG SUBCUTANEOUSLY EVERY WEEK,
     Route: 058
     Dates: start: 2021
  4. ACTEMRA [Suspect]
     Active Substance: TOCILIZUMAB
  5. ACTEMRA [Suspect]
     Active Substance: TOCILIZUMAB
     Indication: Diabetes insipidus
  6. ACTEMRA [Suspect]
     Active Substance: TOCILIZUMAB
  7. BASAGLAR [Concomitant]
     Active Substance: INSULIN GLARGINE
  8. REMICADE [Concomitant]
     Active Substance: INFLIXIMAB
     Dosage: INJECT INTO THE VEIN
     Route: 042
  9. ASPIRIN [Concomitant]
     Active Substance: ASPIRIN
     Route: 048
     Dates: start: 20200304
  10. LIPITOR [Concomitant]
     Active Substance: ATORVASTATIN CALCIUM
     Route: 048
     Dates: start: 20160125
  11. BASAGLAR KWIKPEN [Concomitant]
     Active Substance: INSULIN GLARGINE
     Dosage: INJECT 55 UNITS DAILY AND INCREASE BY 1 UNIT DAILY UNTIL FASTING BLOOD SUGAR LESS THEN 150
     Route: 058
     Dates: start: 20190205
  12. ALPHAGAN P [Concomitant]
     Active Substance: BRIMONIDINE TARTRATE
     Dates: start: 20200529
  13. PROLENSA [Concomitant]
     Active Substance: BROMFENAC SODIUM
     Dates: start: 20200529
  14. CELEXA [Concomitant]
     Active Substance: CITALOPRAM HYDROBROMIDE
     Route: 048
     Dates: start: 20170130
  15. FLEXERIL [Concomitant]
     Active Substance: CYCLOBENZAPRINE HYDROCHLORIDE
     Dosage: TAKE 1 TABLET BY MOUTH EVERY 8 HOURS AS NEEDED
     Route: 048
     Dates: start: 20200108
  16. RESTASIS [Concomitant]
     Active Substance: CYCLOSPORINE
     Dosage: PLACE 1 DROP INTO BOTH EYES EVERY 12 HOURS -BOTH EYES
     Dates: start: 20210205
  17. TRULICITY [Concomitant]
     Active Substance: DULAGLUTIDE
     Dosage: 0.75/0.5ML
     Route: 058
  18. LASIX [Concomitant]
     Active Substance: FUROSEMIDE
     Route: 048
     Dates: start: 20150531
  19. ATARAX [Concomitant]
     Active Substance: HYDROXYZINE HYDROCHLORIDE
     Dosage: TAKE 25 MG BY MOUTH 3 TIME A DAY AS NEEDED FOR ITCHING
     Route: 048
  20. LISINOPRIL [Concomitant]
     Active Substance: LISINOPRIL
     Route: 048
     Dates: start: 20200313
  21. GLUCOPHAGE [Concomitant]
     Active Substance: METFORMIN HYDROCHLORIDE
     Route: 048
     Dates: start: 20170113
  22. MEDROL [Concomitant]
     Active Substance: METHYLPREDNISOLONE
     Route: 048
     Dates: start: 20210527
  23. MYCOLOG-II [Concomitant]
     Active Substance: NYSTATIN\TRIAMCINOLONE ACETONIDE
     Dates: start: 20171010
  24. PATADAY [Concomitant]
     Active Substance: OLOPATADINE HYDROCHLORIDE
     Dosage: PLACE 1 DROP IN BOTH EYES DAILY-BOTH EYES
     Dates: start: 20210524
  25. PRILOSEC [Concomitant]
     Active Substance: OMEPRAZOLE MAGNESIUM
     Route: 048
     Dates: start: 20200401
  26. PRED FORTE [Concomitant]
     Active Substance: PREDNISOLONE ACETATE
     Dosage: PLACE 1 DROP INTO BOTH EYES 6 TIMES A DAY FOR 7 DAYS THEN 1 DROP 4 TIME DAILY FOR 7 DAYS THEN 1 DROP
     Dates: start: 20210316, end: 20210520
  27. DELTASONE [Concomitant]
     Active Substance: PREDNISONE
     Dosage: TAKE 2 TABLETS BY MOUTH DAILY FOR 14 DAYS, THEN 1.5 TABLETS DAILY FOR 45 DAYS
     Route: 048
     Dates: start: 20210316, end: 20210514
  28. LYRICA [Concomitant]
     Active Substance: PREGABALIN
     Route: 048
     Dates: start: 20200320
  29. METFORMIN [Concomitant]
     Active Substance: METFORMIN HYDROCHLORIDE
  30. OZEMPIC [Concomitant]
     Active Substance: SEMAGLUTIDE

REACTIONS (4)
  - Blindness [Unknown]
  - Uveitis [Unknown]
  - Diabetes mellitus [Unknown]
  - Off label use [Unknown]
